FAERS Safety Report 8359216-4 (Version None)
Quarter: 2012Q2

REPORT INFORMATION
  Report Type: 
  Country: None (occurrence: None)
  Receive Date: 20120515
  Receipt Date: 20120508
  Transmission Date: 20120825
  Serious: Yes (Other)
  Sender: FDA-Public Use
  Company Number: US-BAYER-2012-045127

PATIENT
  Age: 56 Year
  Sex: Female

DRUGS (2)
  1. BETASERON [Suspect]
     Indication: RELAPSING-REMITTING MULTIPLE SCLEROSIS
     Dosage: UNK
     Route: 058
     Dates: start: 19930601
  2. BETASERON [Suspect]
     Dosage: UNK
     Route: 058
     Dates: start: 20030520, end: 20090508

REACTIONS (4)
  - PAIN [None]
  - INJECTION SITE CALCIFICATION [None]
  - INJECTION SITE MASS [None]
  - INJECTION SITE REACTION [None]
